FAERS Safety Report 17973043 (Version 2)
Quarter: 2020Q3

REPORT INFORMATION
  Report Type: Report from Study
  Country: GB (occurrence: GB)
  Receive Date: 20200702
  Receipt Date: 20200729
  Transmission Date: 20201103
  Serious: Yes (Death, Hospitalization, Other)
  Sender: FDA-Public Use
  Company Number: GB-ASTRAZENECA-2020SE82563

PATIENT
  Age: 28777 Day
  Sex: Male

DRUGS (2)
  1. FUROSEMIDE. [Suspect]
     Active Substance: FUROSEMIDE
     Route: 065
  2. FASENRA [Suspect]
     Active Substance: BENRALIZUMAB
     Dosage: 30.0MG UNKNOWN
     Route: 058

REACTIONS (13)
  - Cardiac failure [Unknown]
  - Dyspnoea exertional [Not Recovered/Not Resolved]
  - Cardiac murmur [Unknown]
  - Death [Fatal]
  - Abdominal tenderness [Unknown]
  - Mobility decreased [Unknown]
  - Oedema peripheral [Unknown]
  - Nocturnal dyspnoea [Unknown]
  - Vertigo [Unknown]
  - Lower respiratory tract infection [Unknown]
  - Weight increased [Unknown]
  - Chest discomfort [Unknown]
  - Localised oedema [Unknown]

NARRATIVE: CASE EVENT DATE: 20200628
